FAERS Safety Report 6427788-2 (Version None)
Quarter: 2009Q4

REPORT INFORMATION
  Report Type: 
  Country: None (occurrence: None)
  Receive Date: 20091104
  Receipt Date: 20091104
  Transmission Date: 20100525
  Serious: Yes (Other)
  Sender: FDA-Public Use
  Company Number: None

PATIENT
  Age: 53 Year
  Sex: Male
  Weight: 58.2 kg

DRUGS (29)
  1. THYMOGLOBULIN [Suspect]
     Indication: IMMUNOSUPPRESSANT DRUG THERAPY
     Dosage: 125 MG
     Dates: start: 20090825, end: 20090825
  2. THYMOGLOBULIN [Suspect]
  3. FOLIC ACID [Concomitant]
  4. ACETAMINOPHEN AND HYDROCODONE BITARTRATE [Concomitant]
  5. IRON SUCROSE [Concomitant]
  6. KETOCONAZOLE [Concomitant]
  7. LEVOTHYROXINE SODIUM [Concomitant]
  8. METHYLPREDNISOLONE 4MG TAB [Concomitant]
  9. ACETAMINOPHEN [Concomitant]
  10. ASPIRIN [Concomitant]
  11. BISACODYL [Concomitant]
  12. CINACALCET [Concomitant]
  13. DOCUSATE SODIUM [Concomitant]
  14. EPOGEN [Concomitant]
  15. METOPROLOL [Concomitant]
  16. MYCOPHENOLATE MOFETIL [Concomitant]
  17. NALOXONE [Concomitant]
  18. NICOTINE [Concomitant]
  19. NYSTATIN [Concomitant]
  20. ONDANSETRON [Concomitant]
  21. PAROXETINE HCL [Concomitant]
  22. SENNA [Concomitant]
  23. TACROLIMUS [Concomitant]
  24. TAMSULOSIN [Concomitant]
  25. BACTRIM [Concomitant]
  26. VALGANCICLOVIR HCL [Concomitant]
  27. FUROSEMIDE [Concomitant]
  28. MULTI-VITAMIN [Concomitant]
  29. TACROLIMUS [Concomitant]

REACTIONS (1)
  - PRODUCT QUALITY ISSUE [None]
